FAERS Safety Report 13679757 (Version 1)
Quarter: 2017Q2

REPORT INFORMATION
  Report Type: Spontaneous
  Country: US (occurrence: US)
  Receive Date: 20170622
  Receipt Date: 20170622
  Transmission Date: 20170830
  Serious: Yes (Other)
  Sender: FDA-Public Use
  Company Number: US-PFIZER INC-2017268935

PATIENT
  Sex: Female

DRUGS (3)
  1. EUCRISA [Suspect]
     Active Substance: CRISABOROLE
     Indication: ACTINIC CHEILITIS
     Dosage: UNK, APPLY ON LIPS TWICE A DAY
     Route: 061
     Dates: start: 20170608
  2. EUCRISA [Suspect]
     Active Substance: CRISABOROLE
     Indication: DERMATITIS CONTACT
  3. AMLACTIN [Suspect]
     Active Substance: AMMONIUM LACTATE
     Dosage: UNK
     Dates: start: 20170616

REACTIONS (4)
  - Peripheral swelling [Unknown]
  - Product use in unapproved indication [Unknown]
  - Precancerous skin lesion [Unknown]
  - Erythema [Unknown]

NARRATIVE: CASE EVENT DATE: 20170608
